FAERS Safety Report 5305992-4 (Version None)
Quarter: 2007Q2

REPORT INFORMATION
  Report Type: 
  Country: None (occurrence: None)
  Receive Date: 20070424
  Receipt Date: 20070416
  Transmission Date: 20071010
  Serious: Yes (Other)
  Sender: FDA-Public Use
  Company Number: JP-JNJFOC-20070303085

PATIENT
  Age: 43 Year
  Sex: Male
  Weight: 80 kg

DRUGS (25)
  1. REMICADE [Suspect]
     Route: 042
  2. REMICADE [Suspect]
     Route: 042
  3. REMICADE [Suspect]
     Route: 042
  4. REMICADE [Suspect]
     Route: 042
  5. REMICADE [Suspect]
     Route: 042
  6. REMICADE [Suspect]
     Route: 042
  7. REMICADE [Suspect]
     Indication: CROHN'S DISEASE
     Route: 042
  8. LEUKERIN [Suspect]
     Route: 048
  9. LEUKERIN [Suspect]
     Indication: CROHN'S DISEASE
     Route: 048
  10. PENTASA [Suspect]
     Indication: CROHN'S DISEASE
     Route: 048
  11. LOPEMIN [Suspect]
     Indication: CROHN'S DISEASE
     Route: 048
  12. MIYA BM [Suspect]
     Indication: CROHN'S DISEASE
     Dosage: DOSE FOR ONE TREATMENT WAS THREE TABLETS
     Route: 048
  13. ELENTAL [Suspect]
     Dosage: 2-3 PAC
     Route: 048
  14. ELENTAL [Suspect]
     Indication: CROHN'S DISEASE
     Dosage: 4 PAC
     Route: 048
  15. STEROID [Concomitant]
     Indication: PROPHYLAXIS
  16. SEDIEL [Concomitant]
  17. SEROQUEL [Concomitant]
     Route: 048
  18. ROHYPNOL [Concomitant]
     Dosage: DOSE FOR ONE TREATMENT
  19. SOLANAX [Concomitant]
     Dosage: DOSE FOR ONE TREATMENT
  20. BIOFERMIN [Concomitant]
  21. MYSLEE [Concomitant]
  22. ZYPREXA [Concomitant]
  23. ANTIHISTAMINE [Concomitant]
     Indication: PROPHYLAXIS
  24. DECADRON [Concomitant]
     Indication: CROHN'S DISEASE
  25. PREDONINE [Concomitant]
     Indication: CROHN'S DISEASE

REACTIONS (4)
  - DIPLOPIA [None]
  - HEADACHE [None]
  - PYREXIA [None]
  - VISUAL ACUITY REDUCED [None]
